FAERS Safety Report 11060985 (Version 1)
Quarter: 2015Q2

REPORT INFORMATION
  Report Type: Report from Study
  Country: FR (occurrence: FR)
  Receive Date: 20150424
  Receipt Date: 20150424
  Transmission Date: 20150821
  Serious: Yes (Hospitalization)
  Sender: FDA-Public Use
  Company Number: FR-ROCHE-1566837

PATIENT
  Sex: Male

DRUGS (5)
  1. METHOTREXATE [Concomitant]
     Active Substance: METHOTREXATE
     Route: 065
  2. CORTANCYL [Concomitant]
     Active Substance: PREDNISONE
     Route: 065
  3. LEFLUNOMIDE. [Concomitant]
     Active Substance: LEFLUNOMIDE
     Route: 065
  4. RITUXIMAB [Suspect]
     Active Substance: RITUXIMAB
     Indication: RHEUMATOID ARTHRITIS
     Route: 041
  5. METHOTREXATE [Concomitant]
     Active Substance: METHOTREXATE
     Route: 065

REACTIONS (14)
  - Pleurisy [Recovered/Resolved]
  - Musculoskeletal pain [Recovered/Resolved]
  - Rash pustular [Recovered/Resolved]
  - Nausea [Recovered/Resolved]
  - Pericarditis [Recovered/Resolved]
  - Gastroenteritis [Recovered/Resolved]
  - Skin lesion [Recovered/Resolved]
  - Spinal column stenosis [Not Recovered/Not Resolved]
  - Tooth abscess [Recovered/Resolved]
  - Rotator cuff syndrome [Not Recovered/Not Resolved]
  - Lymphoedema [Recovered/Resolved]
  - Pleural effusion [Recovered/Resolved]
  - Dyspepsia [Recovered/Resolved]
  - Bronchitis [Recovered/Resolved]

NARRATIVE: CASE EVENT DATE: 200902
